FAERS Safety Report 10030500 (Version 1)
Quarter: 2014Q1

REPORT INFORMATION
  Report Type: Spontaneous
  Country: US (occurrence: US)
  Receive Date: 20140323
  Receipt Date: 20140323
  Transmission Date: 20141002
  Serious: No
  Sender: FDA-Public Use
  Company Number: US-ALLERGAN-1403234US

PATIENT
  Age: 55 Year
  Sex: Female

DRUGS (3)
  1. LATISSE 0.03% [Suspect]
     Indication: GROWTH OF EYELASHES
     Dosage: UNK
     Route: 061
     Dates: start: 20140216, end: 20140217
  2. SYMBICORT [Concomitant]
     Indication: ASTHMA
  3. ZYRTEC [Concomitant]
     Indication: SEASONAL ALLERGY

REACTIONS (3)
  - Paraesthesia oral [Recovered/Resolved]
  - Glossitis [Recovered/Resolved]
  - Sensation of foreign body [Not Recovered/Not Resolved]
